FAERS Safety Report 5473910-4 (Version None)
Quarter: 2007Q4

REPORT INFORMATION
  Report Type: 
  Country: None (occurrence: None)
  Receive Date: 20071001
  Receipt Date: 20070919
  Transmission Date: 20080405
  Serious: Yes (Other)
  Sender: FDA-Public Use
  Company Number: US-PFIZER INC-2007079703

PATIENT
  Sex: Female
  Weight: 69.09 kg

DRUGS (4)
  1. CHANTIX [Suspect]
     Indication: SMOKING CESSATION THERAPY
     Route: 048
     Dates: start: 20070909, end: 20070912
  2. CELEXA [Concomitant]
     Indication: DEPRESSION
  3. ALL OTHER THERAPEUTIC PRODUCTS [Concomitant]
     Indication: CONTRACEPTION
  4. SYNTHROID [Concomitant]

REACTIONS (3)
  - ACTIVITIES OF DAILY LIVING IMPAIRED [None]
  - CRYING [None]
  - DEPRESSION [None]
